FAERS Safety Report 15213354 (Version 2)
Quarter: 2018Q3

REPORT INFORMATION
  Report Type: Spontaneous
  Country: US (occurrence: US)
  Receive Date: 20180730
  Receipt Date: 20180802
  Transmission Date: 20181010
  Serious: Yes (Other)
  Sender: FDA-Public Use
  Company Number: US-TEVA-2018-US-931855

PATIENT
  Sex: Female

DRUGS (3)
  1. HYDRALAZINE HYDROCHLORIDE. [Suspect]
     Active Substance: HYDRALAZINE HYDROCHLORIDE
     Indication: ATRIAL FIBRILLATION
     Dosage: 75 MILLIGRAM DAILY; SPLITTING ONE 10 MG TABLET AND TAKING TWO 10 MG TABLETS IN THE MORNING FOLLOWED
     Route: 065
  2. IMPAX [Concomitant]
  3. HYDRALAZINE HYDROCHLORIDE. [Suspect]
     Active Substance: HYDRALAZINE HYDROCHLORIDE
     Indication: HYPERTENSION
     Dosage: 60 MILLIGRAM DAILY;
     Route: 065

REACTIONS (7)
  - Tachycardia [Unknown]
  - Wrong technique in product usage process [Unknown]
  - Drug ineffective [Unknown]
  - Palpitations [Unknown]
  - Heart rate irregular [Unknown]
  - Hypertension [Unknown]
  - Headache [Unknown]
